FAERS Safety Report 6593175-X (Version None)
Quarter: 2010Q1

REPORT INFORMATION
  Report Type: 
  Country: None (occurrence: None)
  Receive Date: 20100212
  Receipt Date: 20100129
  Transmission Date: 20100710
  Serious: Yes (Other)
  Sender: FDA-Public Use
  Company Number: IE-1180656

PATIENT
  Age: 44 Year
  Sex: Female

DRUGS (8)
  1. PATANOL         (OLOPATADINE HYDROCHLORIDE) 0.1% OPHTHALMIC SOLUTION Y [Suspect]
     Dosage: NI; OPHTHALMIC
     Route: 047
     Dates: start: 20091208, end: 20100111
  2. TEGRETOL [Concomitant]
  3. SERETIDE (SERETIDE) [Concomitant]
  4. AVAMYS (FLUTICASONE FUROATE) [Concomitant]
  5. NEXIUM [Concomitant]
  6. CALCICHEW D3 (LEKOVIT CA) [Concomitant]
  7. HERBAL PREPARATION (HERBAL PREPARATION) [Concomitant]
  8. ARTELAC (ACETYLSALICYLIC ACID) [Concomitant]

REACTIONS (3)
  - CHEST DISCOMFORT [None]
  - DYSPNOEA [None]
  - PEAK EXPIRATORY FLOW RATE DECREASED [None]
